FAERS Safety Report 23625694 (Version 1)
Quarter: 2024Q1

REPORT INFORMATION
  Report Type: Spontaneous
  Country: US (occurrence: US)
  Receive Date: 20240313
  Receipt Date: 20240313
  Transmission Date: 20240409
  Serious: Yes (Death)
  Sender: FDA-Public Use
  Company Number: US-MTPC-MTDA2024-0005064

PATIENT
  Age: 48 Year
  Sex: Female

DRUGS (2)
  1. RADICAVA ORS [Suspect]
     Active Substance: EDARAVONE
     Indication: Amyotrophic lateral sclerosis
     Dosage: STANDARD DOSE
     Route: 065
     Dates: end: 202312
  2. RADICAVA ORS [Suspect]
     Active Substance: EDARAVONE
     Indication: Amyotrophic lateral sclerosis
     Dosage: STANDARD DOSE
     Route: 065
     Dates: end: 202312

REACTIONS (1)
  - Death [Fatal]

NARRATIVE: CASE EVENT DATE: 20240228
